FAERS Safety Report 17339413 (Version 1)
Quarter: 2020Q1

REPORT INFORMATION
  Report Type: Spontaneous
  Country: JP (occurrence: JP)
  Receive Date: 20200129
  Receipt Date: 20200129
  Transmission Date: 20200409
  Serious: Yes (Other)
  Sender: FDA-Public Use
  Company Number: JP-ELI_LILLY_AND_COMPANY-JP202001008771

PATIENT
  Sex: Male

DRUGS (2)
  1. OPSUMIT [Concomitant]
     Active Substance: MACITENTAN
     Dosage: UNK
     Route: 048
     Dates: start: 20191213
  2. ADCIRCA [Suspect]
     Active Substance: TADALAFIL
     Indication: PULMONARY HYPERTENSION
     Dosage: UNK
     Route: 048
     Dates: start: 20191223

REACTIONS (4)
  - Subarachnoid haemorrhage [Recovered/Resolved]
  - Subdural haematoma [Recovered/Resolved]
  - Fall [Unknown]
  - Delirium [Unknown]

NARRATIVE: CASE EVENT DATE: 20200103
